FAERS Safety Report 4557694-X (Version None)
Quarter: 2005Q1

REPORT INFORMATION
  Report Type: 
  Country: None (occurrence: None)
  Receive Date: 20050103
  Receipt Date: 20040827
  Transmission Date: 20050727
  Serious: Yes (Other)
  Sender: FDA-Public Use
  Company Number: 2004UW16927

PATIENT
  Age: 63 Year
  Sex: Male
  Weight: 64.4108 kg

DRUGS (9)
  1. CRESTOR [Suspect]
     Indication: HYPERCHOLESTEROLAEMIA
     Dosage: 10 MG QD PO
     Route: 048
     Dates: start: 20040502, end: 20040510
  2. CRESTOR [Suspect]
     Indication: HYPERCHOLESTEROLAEMIA
     Dosage: 5 MG QD PO
     Route: 048
     Dates: start: 20040618, end: 20040622
  3. PERCODAN [Concomitant]
  4. METHADONE HCL [Concomitant]
  5. HYDROCHLOROTHIAZIDE [Concomitant]
  6. BACTRIM DS [Concomitant]
  7. PRAVACHOL [Concomitant]
  8. LIPITOR [Concomitant]
  9. ZOCOR [Concomitant]

REACTIONS (2)
  - PROSTATITIS [None]
  - URETHRITIS [None]
